FAERS Safety Report 8169245-1 (Version None)
Quarter: 2012Q1

REPORT INFORMATION
  Report Type: 
  Country: None (occurrence: None)
  Receive Date: 20120228
  Receipt Date: 20120217
  Transmission Date: 20120608
  Serious: Yes (Other)
  Sender: FDA-Public Use
  Company Number: US-AMGEN-USASP2012010840

PATIENT
  Age: 38 Year
  Sex: Female

DRUGS (2)
  1. ENBREL [Suspect]
     Indication: RHEUMATOID ARTHRITIS
     Dosage: 50 MG, Q2WK
     Dates: start: 20061028
  2. METHOTREXATE [Concomitant]
     Dosage: 6 MG, UNK
     Dates: start: 20061001

REACTIONS (11)
  - VISION BLURRED [None]
  - MUSCLE TWITCHING [None]
  - MALAISE [None]
  - BLINDNESS [None]
  - HERNIA [None]
  - NAUSEA [None]
  - VITREOUS FLOATERS [None]
  - WEIGHT INCREASED [None]
  - DIZZINESS [None]
  - ASTHENIA [None]
  - CONSTIPATION [None]
